FAERS Safety Report 4322624-2 (Version None)
Quarter: 2004Q1

REPORT INFORMATION
  Report Type: 
  Country: None (occurrence: None)
  Receive Date: 20040319
  Receipt Date: 20040310
  Transmission Date: 20041129
  Serious: Yes (Death)
  Sender: FDA-Public Use
  Company Number: 167-20785-04030020 (0)

PATIENT
  Age: 56 Year
  Sex: Male

DRUGS (1)
  1. THALIDOMIDE - PHARMION (THALIDOMIDE) (50 MILLIGRAM, CAPSULES) [Suspect]
     Indication: MOUTH ULCERATION
     Dosage: 50 MG, DAILY, ORAL
     Route: 048
     Dates: start: 20040205, end: 20040207

REACTIONS (1)
  - CONFUSIONAL STATE [None]
